FAERS Safety Report 9616808 (Version 1)
Quarter: 2013Q4

REPORT INFORMATION
  Report Type: Spontaneous
  Country: US (occurrence: US)
  Receive Date: 20131011
  Receipt Date: 20131011
  Transmission Date: 20140711
  Serious: Yes (Other)
  Sender: FDA-Public Use
  Company Number: US-ACTAVIS-2013-17572

PATIENT
  Age: 36 Year
  Sex: Female

DRUGS (6)
  1. PREDNISONE (WATSON LABORATORIES) [Suspect]
     Indication: CROHN^S DISEASE
     Dosage: UNK
     Route: 048
  2. INFLIXIMAB [Suspect]
     Indication: CROHN^S DISEASE
     Dosage: UNK
     Route: 065
  3. ADALIMUMAB [Suspect]
     Indication: CROHN^S DISEASE
     Dosage: UNK
     Route: 065
  4. CERTOLIZUMAB [Suspect]
     Indication: CROHN^S DISEASE
     Dosage: UNK
     Route: 065
  5. CIPROFLOXACIN                      /00697203/ [Concomitant]
     Indication: URINARY TRACT INFECTION
     Dosage: UNK
     Route: 065
  6. TRIMETHOPRIM SULFAMETHOXAZOLE [Concomitant]
     Indication: URINARY TRACT INFECTION
     Dosage: UNK
     Route: 065

REACTIONS (1)
  - Histoplasmosis disseminated [Recovered/Resolved]
